FAERS Safety Report 5772871-8 (Version None)
Quarter: 2008Q2

REPORT INFORMATION
  Report Type: 
  Country: None (occurrence: None)
  Receive Date: 20080613
  Receipt Date: 20080603
  Transmission Date: 20081010
  Serious: Yes (Other)
  Sender: FDA-Public Use
  Company Number: JP-PFIZER INC-2008044838

PATIENT
  Sex: Female
  Weight: 47.7 kg

DRUGS (7)
  1. GABAPEN [Suspect]
     Indication: EPILEPSY
     Dosage: DAILY DOSE:1200MG
     Route: 048
     Dates: start: 20080208, end: 20080520
  2. ALEVIATIN [Suspect]
     Route: 048
  3. LEXIN [Suspect]
     Route: 048
  4. RISPERDAL [Concomitant]
     Route: 048
  5. BIPERIDEN HYDROCHLORIDE TAB [Concomitant]
     Route: 048
  6. BENZALIN [Concomitant]
     Route: 048
  7. MAGNESIUM OXIDE [Concomitant]
     Route: 048

REACTIONS (10)
  - ATONIC SEIZURES [None]
  - BLOOD ALKALINE PHOSPHATASE INCREASED [None]
  - GAMMA-GLUTAMYLTRANSFERASE INCREASED [None]
  - HALLUCINATION [None]
  - HEPATIC FUNCTION ABNORMAL [None]
  - HYPERKINESIA [None]
  - INAPPROPRIATE AFFECT [None]
  - LOSS OF CONSCIOUSNESS [None]
  - SOLILOQUY [None]
  - URINARY INCONTINENCE [None]
